FAERS Safety Report 16131548 (Version 1)
Quarter: 2019Q1

REPORT INFORMATION
  Report Type: Spontaneous
  Country: FR (occurrence: FR)
  Receive Date: 20190328
  Receipt Date: 20190328
  Transmission Date: 20190418
  Serious: Yes (Life-Threatening, Hospitalization, Other)
  Sender: FDA-Public Use
  Company Number: FR-AUROBINDO-AUR-APL-2019-015100

PATIENT

DRUGS (3)
  1. TERALITHE [Suspect]
     Active Substance: LITHIUM CARBONATE
     Indication: PRODUCT USED FOR UNKNOWN INDICATION
     Dosage: 1 GRAM, IN TOTAL
     Route: 048
     Dates: start: 20190210, end: 20190210
  2. AMISULPRIDE ARROW [Suspect]
     Active Substance: AMISULPRIDE
     Indication: PRODUCT USED FOR UNKNOWN INDICATION
     Dosage: 250 MILLIGRAM, IN TOTAL
     Route: 048
     Dates: start: 20190210, end: 20190210
  3. CLOZAPINE 100 MG TABLETS BREAKABLE [Suspect]
     Active Substance: CLOZAPINE
     Indication: PRODUCT USED FOR UNKNOWN INDICATION
     Dosage: 300 MILLIGRAM, IN TOTAL
     Route: 048
     Dates: start: 20190210, end: 20190210

REACTIONS (6)
  - Product administration error [Recovered/Resolved]
  - Wrong patient received product [Recovered/Resolved]
  - Coma [Recovered/Resolved]
  - Hypotension [Recovered/Resolved]
  - Tachycardia [Recovered/Resolved]
  - Oxygen saturation decreased [Recovered/Resolved]

NARRATIVE: CASE EVENT DATE: 20190210
